FAERS Safety Report 11757722 (Version 1)
Quarter: 2015Q4

REPORT INFORMATION
  Report Type: Spontaneous
  Country: US (occurrence: None)
  Receive Date: 20151119
  Receipt Date: 20151119
  Transmission Date: 20160304
  Serious: Yes (Life-Threatening, Hospitalization)
  Sender: FDA-Public Use
  Company Number: None

PATIENT
  Age: 59 Year
  Sex: Male
  Weight: 89.3 kg

DRUGS (2)
  1. LISINOPRIL. [Suspect]
     Active Substance: LISINOPRIL
     Indication: HYPERTENSION
     Route: 048
     Dates: start: 20050919, end: 20140717
  2. AMOXICILLIN. [Suspect]
     Active Substance: AMOXICILLIN
     Indication: ANTIBIOTIC THERAPY
     Route: 048
     Dates: start: 20140715, end: 20140716

REACTIONS (5)
  - Dysphagia [None]
  - Lip swelling [None]
  - Tooth extraction [None]
  - Swollen tongue [None]
  - Dysphonia [None]

NARRATIVE: CASE EVENT DATE: 20140716
